FAERS Safety Report 9204991 (Version 2)
Quarter: 2013Q2

REPORT INFORMATION
  Report Type: Report from Study
  Country: US (occurrence: US)
  Receive Date: 20130402
  Receipt Date: 20130411
  Transmission Date: 20140414
  Serious: Yes (Other)
  Sender: FDA-Public Use
  Company Number: US-BAYER-2013-033801

PATIENT
  Age: 80 Year
  Sex: Male

DRUGS (2)
  1. STIVARGA [Suspect]
     Indication: COLON CANCER
     Dosage: 120 MG, QD
     Route: 048
     Dates: start: 20130311
  2. STIVARGA [Suspect]
     Indication: COLON CANCER
     Dosage: 80 MG DAILY
     Dates: start: 201303

REACTIONS (3)
  - Tremor [None]
  - Nervousness [None]
  - Blood pressure increased [Not Recovered/Not Resolved]
